FAERS Safety Report 7239001-7 (Version None)
Quarter: 2011Q1

REPORT INFORMATION
  Report Type: 
  Country: None (occurrence: None)
  Receive Date: 20110121
  Receipt Date: 20110113
  Transmission Date: 20110831
  Serious: Yes (Death)
  Sender: FDA-Public Use
  Company Number: AT-NAPPMUNDI-DEU-2010-0006614

PATIENT
  Age: 30 Year
  Sex: Female

DRUGS (1)
  1. MORPHINE [Suspect]
     Indication: DRUG ABUSE

REACTIONS (2)
  - CEREBROVASCULAR ACCIDENT [None]
  - DRUG ABUSE [None]
